APPROVED DRUG PRODUCT: ATENOLOL
Active Ingredient: ATENOLOL
Strength: 25MG
Dosage Form/Route: TABLET;ORAL
Application: A074099 | Product #001
Applicant: NOVITIUM PHARMA LLC
Approved: Apr 28, 1992 | RLD: No | RS: No | Type: DISCN